FAERS Safety Report 6021733-X (Version None)
Quarter: 2008Q4

REPORT INFORMATION
  Report Type: 
  Country: None (occurrence: None)
  Receive Date: 20081223
  Receipt Date: 20081215
  Transmission Date: 20090506
  Serious: Yes (Other)
  Sender: FDA-Public Use
  Company Number: US025195

PATIENT
  Sex: Female

DRUGS (1)
  1. TREANDA [Suspect]
     Indication: CHRONIC LYMPHOCYTIC LEUKAEMIA
     Dosage: 100 MG/M2 ON DAYS 1 AND 2 INTRAVENOUS
     Route: 042
     Dates: start: 20081001

REACTIONS (1)
  - IDIOPATHIC THROMBOCYTOPENIC PURPURA [None]
